FAERS Safety Report 12916377 (Version 1)
Quarter: 2016Q4

REPORT INFORMATION
  Report Type: Spontaneous
  Country: IT (occurrence: IT)
  Receive Date: 20161107
  Receipt Date: 20161107
  Transmission Date: 20170207
  Serious: Yes (Life-Threatening)
  Sender: FDA-Public Use
  Company Number: IT-SUN PHARMACEUTICAL INDUSTRIES LTD-2016RR-126193

PATIENT
  Age: 92 Year
  Sex: Female
  Weight: 50 kg

DRUGS (5)
  1. QUENTIAX [Interacting]
     Active Substance: QUETIAPINE FUMARATE
     Indication: AGITATION
     Dosage: 100 MG DAILY
     Route: 048
  2. TRITTICO 60 MG/ML [Interacting]
     Active Substance: TRAZODONE HYDROCHLORIDE
     Indication: AGITATION
     Dosage: 10 GTT DAILY
     Route: 048
     Dates: end: 20161003
  3. NIMODIPINE. [Concomitant]
     Active Substance: NIMODIPINE
     Indication: PRODUCT USED FOR UNKNOWN INDICATION
     Dosage: 15 MG
     Route: 042
  4. IPERTEN 20 MG [Concomitant]
     Indication: HYPERTENSION
     Dosage: 1 DF
     Route: 065
  5. CITALOPRAM [Suspect]
     Active Substance: CITALOPRAM HYDROBROMIDE
     Indication: AGITATION
     Dosage: 20 GTT DAILY
     Route: 048
     Dates: end: 20161003

REACTIONS (2)
  - Torsade de pointes [Recovered/Resolved]
  - Drug interaction [Recovered/Resolved]

NARRATIVE: CASE EVENT DATE: 20161001
